FAERS Safety Report 9510786 (Version 4)
Quarter: 2013Q4

REPORT INFORMATION
  Report Type: Spontaneous
  Country: BE (occurrence: BE)
  Receive Date: 20130910
  Receipt Date: 20131210
  Transmission Date: 20140711
  Serious: Yes (Other)
  Sender: FDA-Public Use
  Company Number: BE-AMGEN-BELSP2013062177

PATIENT
  Age: 46 Year
  Sex: Female
  Weight: 55 kg

DRUGS (6)
  1. ARANESP [Suspect]
     Indication: RENAL FAILURE CHRONIC
     Dosage: 600 MUG, QMO
     Route: 042
     Dates: start: 20110201
  2. ADVAGRAF [Concomitant]
     Indication: RENAL TRANSPLANT
     Dosage: 5 MG, QD
     Route: 048
     Dates: start: 20130215
  3. ORGAMETRIL [Concomitant]
     Dosage: 5 MG, QD
     Route: 048
     Dates: start: 20130225
  4. PANTOMED                           /00178901/ [Concomitant]
     Indication: REFLEXES ABNORMAL
     Dosage: 20 MG, QD
     Route: 048
     Dates: start: 20130725
  5. PHOSLO [Concomitant]
     Indication: HYPOPHOSPHATAEMIA
     Dosage: 667 MG, BID
     Route: 048
     Dates: start: 20130813
  6. BURINEX [Concomitant]
     Indication: POLYURIA
     Dosage: 2.5 MG, QD
     Route: 048
     Dates: start: 20130413

REACTIONS (3)
  - Haemoglobin abnormal [Unknown]
  - Drug ineffective [Unknown]
  - Blood erythropoietin decreased [Unknown]
